FAERS Safety Report 9692821 (Version 3)
Quarter: 2014Q1

REPORT INFORMATION
  Report Type: Spontaneous
  Country: US (occurrence: US)
  Receive Date: 20131118
  Receipt Date: 20140131
  Transmission Date: 20141002
  Serious: Yes (Other)
  Sender: FDA-Public Use
  Company Number: US-JNJFOC-20131104478

PATIENT
  Age: 46 Year
  Sex: Male
  Weight: 72.58 kg

DRUGS (3)
  1. STELARA [Suspect]
     Indication: PSORIASIS
     Route: 058
     Dates: start: 2011
  2. STELARA [Suspect]
     Indication: PSORIASIS
     Route: 058
     Dates: start: 2006, end: 2011
  3. UNKNOWN ALLERGY SHOTS [Concomitant]
     Indication: MULTIPLE ALLERGIES
     Route: 065

REACTIONS (4)
  - Human polyomavirus infection [Not Recovered/Not Resolved]
  - Headache [Unknown]
  - Incorrect dose administered [Unknown]
  - Leukoplakia [Unknown]
